FAERS Safety Report 21789291 (Version 1)
Quarter: 2022Q4

REPORT INFORMATION
  Report Type: Report from Study
  Country: US (occurrence: US)
  Receive Date: 20221228
  Receipt Date: 20221228
  Transmission Date: 20230112
  Serious: Yes (Hospitalization, Other)
  Sender: FDA-Public Use
  Company Number: US-002147023-NVSC2022US296598

PATIENT
  Sex: Female

DRUGS (1)
  1. ENTRESTO [Suspect]
     Active Substance: SACUBITRIL\VALSARTAN
     Indication: Ejection fraction abnormal
     Dosage: UNK (FOR A LITTLE OVER 1 YEAR)
     Route: 065
     Dates: start: 201804

REACTIONS (8)
  - Cardiac failure [Unknown]
  - Cardiac dysfunction [Unknown]
  - Cardiomyopathy [Unknown]
  - Dyspnoea [Unknown]
  - Breast cancer metastatic [Unknown]
  - Metastases to lung [Unknown]
  - Metastases to pelvis [Unknown]
  - Metastases to stomach [Unknown]
